FAERS Safety Report 8567107-9 (Version None)
Quarter: 2012Q3

REPORT INFORMATION
  Report Type: 
  Country: None (occurrence: None)
  Receive Date: 20120730
  Receipt Date: 20120730
  Transmission Date: 20120928
  Serious: Yes (Other)
  Sender: FDA-Public Use
  Company Number: None

PATIENT
  Age: 35 Year
  Sex: Female
  Weight: 50.1 kg

DRUGS (2)
  1. CLINDAMYCIN [Suspect]
     Indication: PROPHYLAXIS
     Dosage: 600 MG EVERY 8 HOURS IV, 3 DOSES
     Route: 042
     Dates: start: 20120726, end: 20120727
  2. CLINDAMYCIN [Suspect]
     Indication: POSTOPERATIVE CARE
     Dosage: 600 MG EVERY 8 HOURS IV, 3 DOSES
     Route: 042
     Dates: start: 20120726, end: 20120727

REACTIONS (2)
  - RASH [None]
  - POST PROCEDURAL COMPLICATION [None]
